FAERS Safety Report 5382803-2 (Version None)
Quarter: 2007Q3

REPORT INFORMATION
  Report Type: 
  Country: None (occurrence: None)
  Receive Date: 20070710
  Receipt Date: 20070627
  Transmission Date: 20080115
  Serious: Yes (Other)
  Sender: FDA-Public Use
  Company Number: JP-AMGEN-US232763

PATIENT
  Sex: Male

DRUGS (13)
  1. ENBREL [Suspect]
     Indication: RHEUMATOID ARTHRITIS
     Route: 058
     Dates: start: 20060927, end: 20061003
  2. ENBREL [Suspect]
     Route: 058
     Dates: start: 20061020, end: 20061023
  3. KENACORT [Concomitant]
     Indication: RHEUMATOID ARTHRITIS
     Dosage: INJECTION; DOSE AND FREQUENCY NOT SPECIFIED
  4. PREDONINE [Concomitant]
     Indication: RHEUMATOID ARTHRITIS
     Dosage: INJECTION; DOSE AND FREQUENCY NOT SPECIFIED
     Route: 042
  5. PRORENAL [Concomitant]
     Dosage: TABLET; DOSE AND FREQUENCY NOT SPECIFIED
     Route: 048
  6. SPALT SCHMERZGEL [Concomitant]
     Dosage: OINTMENT; DOSE AND FREQUENCY NOT SPECIFIED
     Route: 061
  7. ALFACALCIDOL [Concomitant]
     Dosage: CAPSULE; DOSE AND FREQUENCY NOT SPECIFIED
     Route: 048
  8. RINDERON-VG [Concomitant]
     Dosage: OINTMENT; DOSE AND FREQUENCY NOT SPECIFIED
     Route: 061
  9. ASPARA-CA [Concomitant]
     Dosage: TABLET; DOSE AND FREQUENCY NOT SPECIFIED
     Route: 048
  10. ACTONEL [Concomitant]
     Dosage: TABLET; DOSE AND FREQUENCY NOT SPECIFIED
     Route: 048
  11. VOLTAREN [Concomitant]
     Indication: RHEUMATOID ARTHRITIS
     Dosage: SUPPOSITORY; DOSE AND FREQUENCY NOT SPECIFIED
     Route: 054
  12. PROGRAF [Concomitant]
     Indication: RHEUMATOID ARTHRITIS
     Route: 048
     Dates: start: 20060414, end: 20060928
  13. PREDNISOLONE [Concomitant]
     Indication: RHEUMATOID ARTHRITIS
     Route: 048

REACTIONS (2)
  - CRYPTOGENIC ORGANISING PNEUMONIA [None]
  - PLEURISY [None]
